FAERS Safety Report 8306718-2 (Version None)
Quarter: 2012Q1

REPORT INFORMATION
  Report Type: 
  Country: None (occurrence: None)
  Receive Date: 20120327
  Receipt Date: 20040827
  Transmission Date: 20120608
  Serious: Yes (Other)
  Sender: FDA-Public Use
  Company Number: PHEH2004US09378

PATIENT
  Age: 74 Year
  Sex: Male

DRUGS (1)
  1. GLEEVEC [Suspect]
     Indication: CHRONIC MYELOID LEUKAEMIA
     Dosage: 400 MG, QD, ORAL
     Route: 048
     Dates: start: 20030501

REACTIONS (7)
  - SKIN BURNING SENSATION [None]
  - DRUG INTERACTION [None]
  - MUSCLE SPASMS [None]
  - CONVULSION [None]
  - BLOOD PRESSURE INCREASED [None]
  - NIGHT SWEATS [None]
  - SLEEP DISORDER [None]
